FAERS Safety Report 9162403 (Version 4)
Quarter: 2015Q1

REPORT INFORMATION
  Report Type: Spontaneous
  Country: US (occurrence: US)
  Receive Date: 20130314
  Receipt Date: 20150319
  Transmission Date: 20150721
  Serious: Yes (Other)
  Sender: FDA-Public Use
  Company Number: US-PFIZER INC-2013081952

PATIENT
  Age: 68 Year
  Sex: Male
  Weight: 77 kg

DRUGS (24)
  1. FISH OIL (+) D3 [Concomitant]
     Dosage: UNK MG, UNK
  2. NIACIN ER [Concomitant]
     Active Substance: NIACIN
     Dosage: UNK
  3. CIALIS [Concomitant]
     Active Substance: TADALAFIL
     Dosage: 20 MG, AS NEEDED
     Dates: start: 20120827
  4. LOSARTAN [Concomitant]
     Active Substance: LOSARTAN
     Dosage: 100 MG, 1X/DAY
     Route: 048
  5. NIFEDIPINE. [Concomitant]
     Active Substance: NIFEDIPINE
     Dosage: 60 MG, 24 HR EXTENDED RELEASE
     Route: 048
     Dates: start: 20120827
  6. PHOSPHA 250 NEUTRAL [Concomitant]
     Active Substance: POTASSIUM PHOSPHATE, MONOBASIC\SODIUM PHOSPHATE, DIBASIC, ANHYDROUS\SODIUM PHOSPHATE, MONOBASIC, MONOHYDRATE
     Dosage: UNK
  7. ASPIRIN. [Concomitant]
     Active Substance: ASPIRIN
     Dosage: LOW STRENGTH
     Dates: start: 20120827
  8. POTASSIUM CHLORIDE ER [Concomitant]
     Active Substance: POTASSIUM CHLORIDE
     Dosage: UNK
     Dates: start: 20120827
  9. RED YEAST RICE [Concomitant]
     Active Substance: DIETARY SUPPLEMENT
     Dosage: 600 MG, UNK
     Dates: start: 20120827
  10. AFINITOR [Concomitant]
     Active Substance: EVEROLIMUS
     Dosage: UNK
  11. NIACIN. [Concomitant]
     Active Substance: NIACIN
     Dosage: 500 MG, UNK
  12. ONDANSETRON [Concomitant]
     Active Substance: ONDANSETRON
     Dosage: 4 MG, DISINTEGRATING TABLET
     Dates: start: 20120827
  13. LASIX [Concomitant]
     Active Substance: FUROSEMIDE
     Dosage: 20 MG, 1X/DAY, PRN
     Route: 048
     Dates: start: 20120827
  14. CLONIDINE. [Concomitant]
     Active Substance: CLONIDINE
     Indication: BLOOD PRESSURE ABNORMAL
     Dosage: 0.3 MG/24 HOUR, PATCH, CHANGED WEEKLY
     Route: 061
     Dates: start: 20120827
  15. POTASSIUM CHLORIDE. [Concomitant]
     Active Substance: POTASSIUM CHLORIDE
     Dosage: 20 MEQ, ORAL PACKET
     Route: 048
     Dates: start: 20120827
  16. FISH OIL [Concomitant]
     Active Substance: FISH OIL
     Dosage: 1000 MG, UNK
  17. ZOFRAN [Concomitant]
     Active Substance: ONDANSETRON HYDROCHLORIDE
     Dosage: 8 MG, DISINTEGRATING TABLET
     Route: 048
     Dates: start: 20120827
  18. PROBIOTIC [Concomitant]
     Active Substance: PROBIOTICS NOS
  19. SUTENT [Suspect]
     Active Substance: SUNITINIB MALATE
     Indication: RENAL CANCER
     Dosage: 50 MG, CYCLIC [ONE WEEK ON AND ONE WEEK OFF]
     Dates: start: 20130222
  20. ASPIRIN. [Concomitant]
     Active Substance: ASPIRIN
     Dosage: 81 MG, 1X/DAY
     Route: 048
  21. FLUNISOLIDE. [Concomitant]
     Active Substance: FLUNISOLIDE
     Dosage: 25 UG, UNK
     Dates: start: 20120827
  22. FUROSEMIDE. [Concomitant]
     Active Substance: FUROSEMIDE
     Dosage: 40 MG, DAILY
     Route: 048
  23. LOSARTAN POTASSIUM. [Concomitant]
     Active Substance: LOSARTAN POTASSIUM
     Dosage: 100 MG, DAILY
     Route: 048
     Dates: start: 20120827
  24. COENZYME Q10 [Concomitant]
     Active Substance: UBIDECARENONE
     Dosage: 50 MG, UNK

REACTIONS (6)
  - Gastrointestinal haemorrhage [Recovered/Resolved]
  - Palmar-plantar erythrodysaesthesia syndrome [Recovering/Resolving]
  - Hypertension [Unknown]
  - Periorbital oedema [Unknown]
  - Disease progression [Unknown]
  - Renal cancer [Unknown]
